FAERS Safety Report 10138855 (Version 2)
Quarter: 2014Q2

REPORT INFORMATION
  Report Type: Spontaneous
  Country: US (occurrence: US)
  Receive Date: 20140429
  Receipt Date: 20140506
  Transmission Date: 20141212
  Serious: No
  Sender: FDA-Public Use
  Company Number: US-BAYER-2014-062127

PATIENT
  Age: 63 Year
  Sex: Female

DRUGS (1)
  1. GADAVIST [Suspect]
     Dosage: 11 ML, ONCE
     Dates: start: 20140331, end: 20140331

REACTIONS (4)
  - Urticaria [None]
  - Eye pruritus [None]
  - Lip pruritus [None]
  - Pruritus [None]
